FAERS Safety Report 8618715-8 (Version None)
Quarter: 2012Q3

REPORT INFORMATION
  Report Type: 
  Country: None (occurrence: None)
  Receive Date: 20120824
  Receipt Date: 20120814
  Transmission Date: 20120928
  Serious: Yes (Other)
  Sender: FDA-Public Use
  Company Number: AT-JNJFOC-20120808003

PATIENT
  Sex: Male
  Weight: 98 kg

DRUGS (2)
  1. STELARA [Suspect]
     Indication: PRODUCT USED FOR UNKNOWN INDICATION
     Route: 058
     Dates: start: 20120803
  2. STELARA [Suspect]
     Route: 058
     Dates: start: 20120705

REACTIONS (5)
  - LYMPHOPENIA [None]
  - INFECTION [None]
  - BRONCHITIS [None]
  - LEUKOCYTOSIS [None]
  - COUGH [None]
